FAERS Safety Report 6551317-6 (Version None)
Quarter: 2010Q1

REPORT INFORMATION
  Report Type: 
  Country: None (occurrence: None)
  Receive Date: 20100119
  Receipt Date: 20091201
  Transmission Date: 20100710
  Serious: Yes (Hospitalization)
  Sender: FDA-Public Use
  Company Number: UTC-000718

PATIENT
  Sex: Female
  Weight: 105 kg

DRUGS (10)
  1. REMODULIN [Suspect]
     Indication: PULMONARY HYPERTENSION
     Dosage: (0.01375 UG/KG,DELIVERED VIA CADD MS3 PUMP), SUBCUTANEOUS
     Route: 058
     Dates: start: 20090601
  2. ALDACTONE [Concomitant]
  3. TRACLEER [Concomitant]
  4. LASIX [Concomitant]
  5. GLUCOPHAGE [Concomitant]
  6. TRESLEEN (SERTRALINE) [Concomitant]
  7. TRAZODONE HYDROCHLORIDE [Concomitant]
  8. FOSAMAX [Concomitant]
  9. INSULIN (INSULIN) [Concomitant]
  10. MARCUMAR [Concomitant]

REACTIONS (2)
  - HAEMATOMA [None]
  - INFECTION [None]
